FAERS Safety Report 10047334 (Version 2)
Quarter: 2014Q2

REPORT INFORMATION
  Report Type: Spontaneous
  Country: DE (occurrence: DE)
  Receive Date: 20140331
  Receipt Date: 20140528
  Transmission Date: 20141212
  Serious: Yes (Life-Threatening, Hospitalization, Other)
  Sender: FDA-Public Use
  Company Number: DE-JNJFOC-20140314188

PATIENT
  Age: 70 Year
  Sex: Male
  Weight: 66 kg

DRUGS (10)
  1. XARELTO [Suspect]
     Indication: TACHYARRHYTHMIA
     Route: 048
     Dates: start: 20140213, end: 20140224
  2. ASS [Suspect]
     Indication: CORONARY ARTERY DISEASE
     Route: 048
  3. VALSARTAN [Concomitant]
     Indication: HYPERTENSION
     Route: 048
  4. XIPAMID [Concomitant]
     Indication: HYPERTENSION
     Route: 048
  5. CLOPIDOGREL [Concomitant]
     Indication: STENT PLACEMENT
     Route: 048
     Dates: start: 20140213
  6. BISOPROLOL [Concomitant]
     Route: 065
  7. FELODIPINE [Concomitant]
     Route: 065
  8. SIMVASTATIN [Concomitant]
     Route: 065
  9. SPIRIVA [Concomitant]
     Route: 065
  10. VIANI [Concomitant]
     Route: 065

REACTIONS (4)
  - Epistaxis [Recovering/Resolving]
  - Dizziness [Recovering/Resolving]
  - Haematochezia [Recovering/Resolving]
  - Haematuria [Recovering/Resolving]
